FAERS Safety Report 8396470-7 (Version None)
Quarter: 2012Q2

REPORT INFORMATION
  Report Type: 
  Country: None (occurrence: None)
  Receive Date: 20120530
  Receipt Date: 20120517
  Transmission Date: 20120825
  Serious: No
  Sender: FDA-Public Use
  Company Number: US-ASTRAZENECA-2012SE32021

PATIENT
  Age: 30 Year
  Sex: Male
  Weight: 77.1 kg

DRUGS (6)
  1. SEROQUEL XR [Suspect]
     Indication: DEPRESSION
     Route: 048
     Dates: start: 20120101
  2. ZOLOFT [Concomitant]
     Indication: DEPRESSION
     Route: 048
  3. ZOLOFT [Concomitant]
     Indication: BIPOLAR DISORDER
     Route: 048
  4. LITHIUM [Concomitant]
     Indication: DEPRESSION
     Route: 048
  5. LITHIUM [Concomitant]
     Indication: BIPOLAR DISORDER
     Route: 048
  6. SEROQUEL XR [Suspect]
     Indication: BIPOLAR DISORDER
     Route: 048
     Dates: start: 20120101

REACTIONS (5)
  - RESTLESSNESS [None]
  - DRUG DOSE OMISSION [None]
  - ANXIETY [None]
  - INSOMNIA [None]
  - DRUG WITHDRAWAL SYNDROME [None]
